FAERS Safety Report 9651053 (Version 3)
Quarter: 2014Q1

REPORT INFORMATION
  Report Type: Report from Study
  Country: BR (occurrence: BR)
  Receive Date: 20131029
  Receipt Date: 20140106
  Transmission Date: 20141002
  Serious: Yes (Other)
  Sender: FDA-Public Use
  Company Number: PHHY2013BR121004

PATIENT
  Sex: Female
  Weight: 70 kg

DRUGS (5)
  1. ACLASTA [Suspect]
     Indication: OSTEOPOROSIS
     Dosage: 5 MG, UNK
     Route: 042
     Dates: start: 201212
  2. PANTOPRAZOLE [Concomitant]
     Indication: GASTROINTESTINAL DISORDER
     Dosage: 1 DF, DAILY (2 YEARS AGO)
     Route: 048
     Dates: start: 2011
  3. OSCAL D [Concomitant]
     Indication: OSTEOPOROSIS
     Dosage: 1 DF, DAILY
     Route: 048
     Dates: start: 201312
  4. PAXIL//PAROXETINE HYDROCHLORIDE [Concomitant]
     Indication: DEPRESSION
     Dosage: 1 DF, DAILY (2 YEARS AGO)
     Route: 048
     Dates: start: 2011
  5. DIGEDRAT [Concomitant]
     Indication: IRRITABLE BOWEL SYNDROME
     Dosage: 1 DF, DAILY (3 YEARS AGO)
     Route: 048
     Dates: start: 2011, end: 201311

REACTIONS (6)
  - Nephrolithiasis [Recovered/Resolved]
  - Renal colic [Recovered/Resolved]
  - Calculus urethral [Recovered/Resolved]
  - Kidney enlargement [Recovered/Resolved]
  - Urinary retention [Recovered/Resolved]
  - Pain [Recovered/Resolved]
